FAERS Safety Report 6763244-X (Version None)
Quarter: 2010Q2

REPORT INFORMATION
  Report Type: 
  Country: None (occurrence: None)
  Receive Date: 20100608
  Receipt Date: 20100608
  Transmission Date: 20101027
  Serious: Yes (Other)
  Sender: FDA-Public Use
  Company Number: None

PATIENT
  Age: 64 Year
  Sex: Female
  Weight: 67.1324 kg

DRUGS (1)
  1. ZOMETA [Suspect]
     Indication: LYMPHOMA
     Dosage: MONTHLY IV DRIP
     Route: 041
     Dates: start: 20100520, end: 20100520

REACTIONS (8)
  - ABASIA [None]
  - ARTHRALGIA [None]
  - BONE PAIN [None]
  - DISCOMFORT [None]
  - GASTRIC DISORDER [None]
  - INFLUENZA LIKE ILLNESS [None]
  - JOINT SWELLING [None]
  - MUSCULOSKELETAL STIFFNESS [None]
